FAERS Safety Report 8475966-3 (Version None)
Quarter: 2012Q2

REPORT INFORMATION
  Report Type: 
  Country: None (occurrence: None)
  Receive Date: 20120628
  Receipt Date: 20120619
  Transmission Date: 20120825
  Serious: Yes (Other)
  Sender: FDA-Public Use
  Company Number: US-BRISTOL-MYERS SQUIBB COMPANY-16692303

PATIENT
  Age: 74 Year
  Sex: Female
  Weight: 66 kg

DRUGS (1)
  1. YERVOY [Suspect]
     Indication: MALIGNANT MELANOMA
     Dosage: TOTAL OF 7 TREATMENTS DOSE:670MG,IV:APR2011,663MG:08MAR2012.  YERVOY DOSE FROM DEC2011
     Route: 042
     Dates: start: 20110401, end: 20120308

REACTIONS (2)
  - PULMONARY GRANULOMA [None]
  - FATIGUE [None]
